FAERS Safety Report 11761869 (Version 2)
Quarter: 2016Q2

REPORT INFORMATION
  Report Type: Spontaneous
  Country: US (occurrence: US)
  Receive Date: 20151120
  Receipt Date: 20160520
  Transmission Date: 20160815
  Serious: No
  Sender: FDA-Public Use
  Company Number: US-MDT-ADR-2015-02203

PATIENT
  Age: 31 Year
  Sex: Male

DRUGS (13)
  1. BACLOFEN. [Suspect]
     Active Substance: BACLOFEN
     Route: 037
  2. OXYCODONE [Suspect]
     Active Substance: OXYCODONE
     Route: 065
  3. CYCLOBENZAPRINE [Suspect]
     Active Substance: CYCLOBENZAPRINE
     Route: 065
  4. BACLOFEN. [Suspect]
     Active Substance: BACLOFEN
     Route: 037
     Dates: start: 20150723
  5. CYMBALTA [Suspect]
     Active Substance: DULOXETINE HYDROCHLORIDE
     Route: 065
  6. EFFEXOR [Suspect]
     Active Substance: VENLAFAXINE HYDROCHLORIDE
     Route: 065
  7. NORTIPTYLINE [Suspect]
     Active Substance: NORTRIPTYLINE
     Route: 065
  8. OXYBUTYNIN [Suspect]
     Active Substance: OXYBUTYNIN
     Route: 065
  9. GABAPENTIN. [Suspect]
     Active Substance: GABAPENTIN
     Route: 065
  10. LEVOTHYROXINE. [Suspect]
     Active Substance: LEVOTHYROXINE
     Route: 065
  11. MIDODRINE [Suspect]
     Active Substance: MIDODRINE
     Route: 065
  12. ALPRAZOLAM. [Suspect]
     Active Substance: ALPRAZOLAM
     Dosage: 0.25 MCG, UP TO 2X/DAY IF NEEDED
     Route: 065
  13. BACLOFEN. [Suspect]
     Active Substance: BACLOFEN
     Route: 037

REACTIONS (4)
  - Dyspnoea [Unknown]
  - Muscle spasticity [Unknown]
  - Therapeutic response decreased [Unknown]
  - Hypertonia [Unknown]

NARRATIVE: CASE EVENT DATE: 20150817
